FAERS Safety Report 4592820-8 (Version None)
Quarter: 2005Q1

REPORT INFORMATION
  Report Type: 
  Country: None (occurrence: None)
  Receive Date: 20050228
  Receipt Date: 20041022
  Transmission Date: 20050727
  Serious: Yes (Hospitalization)
  Sender: FDA-Public Use
  Company Number: US-GLAXOSMITHKLINE-A0530955A

PATIENT
  Age: 85 Year
  Sex: Female
  Weight: 59.5 kg

DRUGS (8)
  1. TUMS REGULAR TABLETS, PEPPERMINT [Suspect]
     Indication: PROPHYLAXIS
     Route: 048
     Dates: end: 20041101
  2. TUMS E-X TABLETS [Suspect]
     Indication: PROPHYLAXIS
     Route: 048
     Dates: end: 20041101
  3. LIPITOR [Concomitant]
     Route: 048
  4. ATENOLOL [Concomitant]
     Route: 048
  5. DIGOXIN [Concomitant]
     Route: 048
  6. TOPROL-XL [Concomitant]
     Route: 048
  7. ALTACE [Concomitant]
     Route: 048
  8. EVISTA [Concomitant]
     Indication: OSTEOPOROSIS
     Route: 048

REACTIONS (17)
  - ANAEMIA [None]
  - ANAL SPHINCTER ATONY [None]
  - ANOREXIA [None]
  - BLOOD GLUCOSE INCREASED [None]
  - COLONIC HAEMORRHAGE [None]
  - DIABETES MELLITUS [None]
  - DIARRHOEA [None]
  - DRUG ABUSER [None]
  - FAECAL INCONTINENCE [None]
  - FEELING ABNORMAL [None]
  - GASTRIC ULCER [None]
  - GASTRITIS [None]
  - INSULIN-REQUIRING TYPE II DIABETES MELLITUS [None]
  - METAPLASIA [None]
  - RECTAL PROLAPSE [None]
  - WEIGHT DECREASED [None]
  - WHOLE BLOOD TRANSFUSION [None]
